FAERS Safety Report 4737396-7 (Version None)
Quarter: 2005Q3

REPORT INFORMATION
  Report Type: 
  Country: None (occurrence: None)
  Receive Date: 20050809
  Receipt Date: 20050725
  Transmission Date: 20060218
  Serious: Yes (Disabling, Other)
  Sender: FDA-Public Use
  Company Number: 2005AC01116

PATIENT
  Age: 35 Year
  Sex: Male
  Weight: 65 kg

DRUGS (1)
  1. BUPIVACAINE [Suspect]
     Indication: ANAESTHESIA

REACTIONS (6)
  - ANAESTHETIC COMPLICATION [None]
  - DELAYED RECOVERY FROM ANAESTHESIA [None]
  - DYSAESTHESIA [None]
  - MUSCULAR WEAKNESS [None]
  - PERIPHERAL COLDNESS [None]
  - SENSORY LOSS [None]
